FAERS Safety Report 25526001 (Version 2)
Quarter: 2025Q3

REPORT INFORMATION
  Report Type: Spontaneous
  Country: EU (occurrence: EU)
  Receive Date: 20250707
  Receipt Date: 20250714
  Transmission Date: 20251021
  Serious: No
  Sender: EXELIXIS
  Company Number: EU-IPSEN Group, Research and Development-2025-15289

PATIENT

DRUGS (2)
  1. CABOMETYX [Suspect]
     Active Substance: CABOZANTINIB S-MALATE
     Indication: Off label use
  2. CABOMETYX [Suspect]
     Active Substance: CABOZANTINIB S-MALATE
     Indication: Small intestine neuroendocrine tumour

REACTIONS (2)
  - Fatigue [Unknown]
  - Off label use [Unknown]
